FAERS Safety Report 16313802 (Version 1)
Quarter: 2019Q2

REPORT INFORMATION
  Report Type: Spontaneous
  Country: US (occurrence: US)
  Receive Date: 20190515
  Receipt Date: 20190515
  Transmission Date: 20190711
  Serious: Yes (Life-Threatening, Hospitalization, Other)
  Sender: FDA-Public Use
  Company Number: US-HIKMA PHARMACEUTICALS USA INC.-US-H14001-19-03070

PATIENT
  Age: 74 Year
  Sex: Male

DRUGS (1)
  1. HEPARIN [Suspect]
     Active Substance: HEPARIN SODIUM
     Indication: EMBOLISM ARTERIAL
     Dosage: ()
     Route: 065

REACTIONS (2)
  - Disseminated intravascular coagulation [Unknown]
  - Heparin-induced thrombocytopenia [Unknown]
